FAERS Safety Report 13334075 (Version 1)
Quarter: 2017Q1

REPORT INFORMATION
  Report Type: Report from Study
  Country: None (occurrence: SE)
  Receive Date: 20170313
  Receipt Date: 20170313
  Transmission Date: 20170428
  Serious: Yes (Hospitalization)
  Sender: FDA-Public Use
  Company Number: SE-ABBVIE-17P-150-1890735-00

PATIENT
  Age: 46 Year
  Sex: Male

DRUGS (3)
  1. DUODOPA [Suspect]
     Active Substance: CARBIDOPA\LEVODOPA
     Indication: PARKINSON^S DISEASE
     Route: 050
     Dates: start: 20150323, end: 20150422
  2. DUODOPA [Suspect]
     Active Substance: CARBIDOPA\LEVODOPA
     Route: 050
     Dates: start: 20170227, end: 20170305
  3. DUODOPA [Suspect]
     Active Substance: CARBIDOPA\LEVODOPA
     Route: 050
     Dates: start: 20150422

REACTIONS (13)
  - Parkinson^s disease [Not Recovered/Not Resolved]
  - Panic attack [Not Recovered/Not Resolved]
  - Panic reaction [Not Recovered/Not Resolved]
  - Incorrect route of drug administration [Recovered/Resolved]
  - Device dislocation [Unknown]
  - Dyspnoea [Not Recovered/Not Resolved]
  - Hyperkinesia [Not Recovered/Not Resolved]
  - Device dislocation [Unknown]
  - Incorrect route of drug administration [Recovered/Resolved]
  - Device use issue [Unknown]
  - Poor quality sleep [Not Recovered/Not Resolved]
  - Anxiety [Not Recovered/Not Resolved]
  - Device connection issue [Unknown]

NARRATIVE: CASE EVENT DATE: 201702
